FAERS Safety Report 11055818 (Version 1)
Quarter: 2015Q2

REPORT INFORMATION
  Report Type: Spontaneous
  Country: US (occurrence: US)
  Receive Date: 20150422
  Receipt Date: 20150422
  Transmission Date: 20150821
  Serious: No
  Sender: FDA-Public Use
  Company Number: US-BAYER-2015-117403

PATIENT
  Sex: Male

DRUGS (1)
  1. LORATADINE. [Suspect]
     Active Substance: LORATADINE
     Indication: PRODUCTIVE COUGH
     Dosage: 10 MG, ONCE
     Route: 048
     Dates: start: 20150327

REACTIONS (2)
  - Eye swelling [Not Recovered/Not Resolved]
  - Product use issue [Unknown]

NARRATIVE: CASE EVENT DATE: 20150327
